FAERS Safety Report 9334686 (Version 1)
Quarter: 2013Q2

REPORT INFORMATION
  Report Type: Spontaneous
  Country: US (occurrence: US)
  Receive Date: 20130606
  Receipt Date: 20130606
  Transmission Date: 20140414
  Serious: No
  Sender: FDA-Public Use
  Company Number: US-AMGEN-USASP2013015734

PATIENT
  Age: 70 Year
  Sex: Female

DRUGS (13)
  1. PROLIA [Suspect]
     Indication: OSTEOPOROSIS POSTMENOPAUSAL
     Dosage: UNK UNK, Q6MO
  2. GLIPIZIDE [Concomitant]
  3. CILOSTAZOL [Concomitant]
  4. ATENOLOL [Concomitant]
  5. FUROSEMIDE [Concomitant]
  6. NIFEDIPINE [Concomitant]
  7. ALLOPURINOL [Concomitant]
  8. MULTIVITAMIN                       /00097801/ [Concomitant]
  9. LISINOPRIL [Concomitant]
  10. SIMVASTATIN [Concomitant]
  11. ECOTRIN [Concomitant]
  12. HUMALOG [Concomitant]
  13. LANTUS [Concomitant]

REACTIONS (4)
  - Rash pruritic [Not Recovered/Not Resolved]
  - Diarrhoea [Recovering/Resolving]
  - Blister [Unknown]
  - Skin discolouration [Unknown]
